FAERS Safety Report 15120291 (Version 5)
Quarter: 2020Q2

REPORT INFORMATION
  Report Type: Spontaneous
  Country: IT (occurrence: IT)
  Receive Date: 20180709
  Receipt Date: 20200423
  Transmission Date: 20200713
  Serious: Yes (Other)
  Sender: FDA-Public Use
  Company Number: IT-AUROBINDO-AUR-APL-2018-034641

PATIENT
  Age: 16 Year
  Sex: Female

DRUGS (10)
  1. OMBITASVIR;PARITAPREVIR;RITONAVIR [Suspect]
     Active Substance: OMBITASVIR\PARITAPREVIR\RITONAVIR
     Indication: HEPATIC CIRRHOSIS
  2. RIBAVIRIN CAPSULE [Suspect]
     Active Substance: RIBAVIRIN
     Indication: CHRONIC HEPATITIS C
     Dosage: 1000 MILLIGRAM TWO DOSES PER DAY (WEIGHT BASED)
     Route: 048
     Dates: start: 201510, end: 2015
  3. PARITAPREVIR [Suspect]
     Active Substance: PARITAPREVIR
     Indication: CHRONIC HEPATITIS C
     Dosage: 150 MILLIGRAM, ONCE A DAY
     Route: 048
     Dates: start: 201510, end: 2015
  4. RITONAVIR. [Suspect]
     Active Substance: RITONAVIR
     Indication: HEPATIC CIRRHOSIS
     Dosage: 100 MILLIGRAM, ONCE A DAY
     Route: 048
     Dates: start: 201510, end: 2015
  5. PARITAPREVIR [Suspect]
     Active Substance: PARITAPREVIR
     Indication: HEPATIC CIRRHOSIS
     Dosage: UNK
     Route: 016
  6. RITONAVIR. [Suspect]
     Active Substance: RITONAVIR
     Indication: HEPATIC CIRRHOSIS
     Dosage: UNK
     Route: 016
  7. RITONAVIR. [Suspect]
     Active Substance: RITONAVIR
     Indication: CHRONIC HEPATITIS C
  8. OMBITASVIR;PARITAPREVIR;RITONAVIR [Suspect]
     Active Substance: OMBITASVIR\PARITAPREVIR\RITONAVIR
     Indication: HEPATITIS C
     Dosage: 25/150/100 MG MG ORAL ONCE A DAY
     Route: 048
     Dates: start: 201510
  9. OMBITASVIR [Suspect]
     Active Substance: OMBITASVIR
     Indication: CHRONIC HEPATITIS C
     Dosage: 25 MILLIGRAM, ONCE A DAY
     Route: 048
     Dates: start: 201510, end: 2015
  10. RIBAVIRIN CAPSULE [Suspect]
     Active Substance: RIBAVIRIN
     Indication: HEPATIC CIRRHOSIS

REACTIONS (3)
  - Off label use [Unknown]
  - Pathogen resistance [Unknown]
  - Treatment failure [Unknown]

NARRATIVE: CASE EVENT DATE: 2015
